FAERS Safety Report 9332964 (Version 1)
Quarter: 2013Q2

REPORT INFORMATION
  Report Type: Spontaneous
  Country: BR (occurrence: BR)
  Receive Date: 20130606
  Receipt Date: 20130606
  Transmission Date: 20140414
  Serious: Yes (Other)
  Sender: FDA-Public Use
  Company Number: BR-PFIZER INC-2013170773

PATIENT
  Sex: Female

DRUGS (1)
  1. LIPITOR [Suspect]
     Indication: ANTICOAGULANT THERAPY
     Dosage: 20 MG (ONE TABLET), ONCE DAILY
     Route: 048
     Dates: start: 2007

REACTIONS (2)
  - Arterial occlusive disease [Unknown]
  - Off label use [Not Recovered/Not Resolved]
